FAERS Safety Report 7234991-0 (Version None)
Quarter: 2011Q1

REPORT INFORMATION
  Report Type: 
  Country: None (occurrence: None)
  Receive Date: 20110120
  Receipt Date: 20110111
  Transmission Date: 20110831
  Serious: Yes (Other)
  Sender: FDA-Public Use
  Company Number: CA-JNJFOC-20090403910

PATIENT
  Sex: Female
  Weight: 72.8 kg

DRUGS (4)
  1. NEURONTIN [Concomitant]
  2. NEURONTIN [Concomitant]
  3. REMICADE [Suspect]
     Indication: RHEUMATOID ARTHRITIS
     Dosage: TOTAL OF 32 DOSES
     Route: 042
  4. METHOTREXATE [Concomitant]

REACTIONS (1)
  - TYPE 2 DIABETES MELLITUS [None]
